FAERS Safety Report 9504039 (Version 1)
Quarter: 2013Q3

REPORT INFORMATION
  Report Type: Spontaneous
  Country: US (occurrence: None)
  Receive Date: 20130905
  Receipt Date: 20130905
  Transmission Date: 20140515
  Serious: Yes (Death)
  Sender: FDA-Public Use
  Company Number: None

PATIENT
  Sex: 0

DRUGS (2)
  1. XELODA [Suspect]
     Indication: BREAST CANCER
     Dosage: 2 TABS  BID  PO
     Route: 048
     Dates: start: 20130730, end: 20130904
  2. XELODA [Concomitant]
     Dosage: 2 TABS  BID  PO
     Route: 048

REACTIONS (1)
  - Death [None]
